FAERS Safety Report 9983839 (Version 2)
Quarter: 2014Q3

REPORT INFORMATION
  Report Type: Spontaneous
  Country: GB (occurrence: GB)
  Receive Date: 20140307
  Receipt Date: 20140908
  Transmission Date: 20150326
  Serious: Yes (Other)
  Sender: FDA-Public Use
  Company Number: GB-009507513-1403GBR001885

PATIENT
  Age: 38 Year
  Sex: Male
  Weight: 77 kg

DRUGS (4)
  1. OMEPRAZOLE. [Concomitant]
     Active Substance: OMEPRAZOLE
  2. PROPECIA [Suspect]
     Active Substance: FINASTERIDE
     Indication: ALOPECIA
     Dosage: 1 MG, UNK
     Route: 048
     Dates: start: 20111014, end: 20120514
  3. PROPRANOLOL HYDROCHLORIDE. [Concomitant]
     Active Substance: PROPRANOLOL HYDROCHLORIDE
  4. CITALOPRAM [Concomitant]
     Active Substance: CITALOPRAM HYDROBROMIDE

REACTIONS (8)
  - Androgen deficiency [Not Recovered/Not Resolved]
  - Anxiety [Not Recovered/Not Resolved]
  - Hypogonadism [Not Recovered/Not Resolved]
  - Infertility [Not Recovered/Not Resolved]
  - Depression [Not Recovered/Not Resolved]
  - Loss of libido [Not Recovered/Not Resolved]
  - Memory impairment [Not Recovered/Not Resolved]
  - Erectile dysfunction [Not Recovered/Not Resolved]

NARRATIVE: CASE EVENT DATE: 20120515
